FAERS Safety Report 10716493 (Version 2)
Quarter: 2015Q1

REPORT INFORMATION
  Report Type: Report from Study
  Country: BR (occurrence: BR)
  Receive Date: 20150116
  Receipt Date: 20150126
  Transmission Date: 20150721
  Serious: Yes (Hospitalization, Other)
  Sender: FDA-Public Use
  Company Number: BR-AMGEN-2014-2265

PATIENT
  Age: 38 Year
  Sex: Male
  Weight: 111 kg

DRUGS (14)
  1. CARFILZOMIB [Suspect]
     Active Substance: CARFILZOMIB
     Dosage: FREQUENCY: 4 EVERY 21 DAYS; FREQ. TEXT: DAYS 8, 9, 15, 16
     Route: 042
     Dates: start: 20140218, end: 20140226
  2. ACYCLOVIR. [Concomitant]
     Active Substance: ACYCLOVIR
     Indication: ANTIVIRAL PROPHYLAXIS
     Route: 048
     Dates: start: 20140206, end: 20141012
  3. AMOXACILINE AND CLAVULONATE [Concomitant]
     Indication: SINUSITIS
     Route: 048
     Dates: start: 20141009, end: 20141011
  4. CARFILZOMIB [Suspect]
     Active Substance: CARFILZOMIB
     Indication: PLASMA CELL MYELOMA
     Dosage: FREQ. TEXT: DAYS 1, 2
     Route: 042
     Dates: start: 20140211, end: 20140212
  5. CARFILZOMIB [Suspect]
     Active Substance: CARFILZOMIB
     Dosage: FREQUENCY: 6 EVERY 28 DAYS; FREQ. TEXT: DAY 1, 2, 8, 9, 15, 16, EVERY 28 DAYS
     Route: 042
     Dates: start: 20140311, end: 20141001
  6. ALLOPURINOL. [Concomitant]
     Active Substance: ALLOPURINOL
     Indication: PROPHYLAXIS
     Route: 048
     Dates: start: 20140729, end: 20141011
  7. AMLODIPINE [Concomitant]
     Active Substance: AMLODIPINE BESYLATE
     Indication: HYPERTENSION
     Route: 048
     Dates: start: 2009, end: 20141011
  8. CARFILZOMIB [Suspect]
     Active Substance: CARFILZOMIB
     Route: 042
  9. DEXAMETHASONE. [Suspect]
     Active Substance: DEXAMETHASONE
     Route: 048
  10. OMEPRAZOLE. [Concomitant]
     Active Substance: OMEPRAZOLE
     Indication: PAIN PROPHYLAXIS
     Route: 048
     Dates: start: 20140206, end: 20141013
  11. FUROSEMIDE. [Concomitant]
     Active Substance: FUROSEMIDE
     Indication: OEDEMA PERIPHERAL
     Route: 048
     Dates: start: 20140425, end: 20141011
  12. DEXAMETHASONE. [Suspect]
     Active Substance: DEXAMETHASONE
     Indication: PLASMA CELL MYELOMA
     Dosage: FREQUENCY: 8 EVERY 28 DAYS; FREQ. TEXT: DAYS 1,2,8,9,15,16,22,23, EVERY 28 DAYS
     Route: 048
     Dates: start: 20140211, end: 20141010
  13. DEXAMETHASONE. [Suspect]
     Active Substance: DEXAMETHASONE
     Route: 048
  14. LOSARTAN [Concomitant]
     Active Substance: LOSARTAN
     Indication: HYPERTENSION
     Route: 048
     Dates: start: 2009, end: 20141011

REACTIONS (1)
  - Encephalomyelitis [Recovered/Resolved]

NARRATIVE: CASE EVENT DATE: 20141012
